FAERS Safety Report 17424897 (Version 3)
Quarter: 2025Q1

REPORT INFORMATION
  Report Type: Spontaneous
  Country: AU (occurrence: AU)
  Receive Date: 20200217
  Receipt Date: 20250319
  Transmission Date: 20250408
  Serious: Yes (Other)
  Sender: NOVARTIS
  Company Number: AU-NOVARTISPH-NVSC2020AU040804

PATIENT
  Sex: Male

DRUGS (1)
  1. COSENTYX [Suspect]
     Active Substance: SECUKINUMAB
     Indication: Ankylosing spondylitis
     Dosage: 150 MG, QMO
     Route: 058

REACTIONS (9)
  - Blindness [Unknown]
  - Coronavirus infection [Unknown]
  - Infection [Unknown]
  - Limb mass [Unknown]
  - Blepharitis [Unknown]
  - Swelling of eyelid [Unknown]
  - Vision blurred [Unknown]
  - Ill-defined disorder [Unknown]
  - Gait disturbance [Unknown]
